FAERS Safety Report 7226311-2 (Version None)
Quarter: 2011Q1

REPORT INFORMATION
  Report Type: 
  Country: None (occurrence: None)
  Receive Date: 20110114
  Receipt Date: 20110107
  Transmission Date: 20110831
  Serious: Yes (Hospitalization)
  Sender: FDA-Public Use
  Company Number: PHHY2011DE02147

PATIENT
  Sex: Female

DRUGS (3)
  1. IBUPROFEN [Concomitant]
     Dosage: HALF A TABLET
  2. EXTAVIA [Suspect]
     Indication: MULTIPLE SCLEROSIS
     Dosage: 125 UG, QOD
     Route: 058
     Dates: start: 20101118, end: 20101125
  3. ORAL CONTRACEPTIVE NOS [Concomitant]
     Dosage: UNK

REACTIONS (1)
  - HEPATIC FAILURE [None]
